FAERS Safety Report 5181547-X (Version None)
Quarter: 2006Q4

REPORT INFORMATION
  Report Type: 
  Country: None (occurrence: None)
  Receive Date: 20061220
  Receipt Date: 20060131
  Transmission Date: 20070319
  Serious: Yes (Other)
  Sender: FDA-Public Use
  Company Number: US-GLAXOSMITHKLINE-A0591635A

PATIENT
  Age: 39 Year
  Sex: Female

DRUGS (2)
  1. COMMIT [Suspect]
     Dosage: 2MG SEE DOSAGE TEXT
  2. COMMIT [Suspect]
     Dosage: 4MG SEE DOSAGE TEXT
     Dates: start: 20041028

REACTIONS (8)
  - CHEST DISCOMFORT [None]
  - DEHYDRATION [None]
  - DIZZINESS [None]
  - DRUG ABUSER [None]
  - EAR PAIN [None]
  - HEADACHE [None]
  - HEART RATE IRREGULAR [None]
  - NAUSEA [None]
